FAERS Safety Report 16133395 (Version 2)
Quarter: 2019Q2

REPORT INFORMATION
  Report Type: Spontaneous
  Country: US (occurrence: US)
  Receive Date: 20190329
  Receipt Date: 20190403
  Transmission Date: 20190711
  Serious: No
  Sender: FDA-Public Use
  Company Number: US-PFIZER INC-2019128336

PATIENT
  Age: 72 Year
  Sex: Male
  Weight: 77.11 kg

DRUGS (3)
  1. SILDENAFIL CITRATE. [Suspect]
     Active Substance: SILDENAFIL CITRATE
     Indication: ERECTILE DYSFUNCTION
     Dosage: 100 MG, AS NEEDED,(100MG BY MOUTH AS NEEDED ONCE EVERY 3-6 WEEKS)
     Route: 048
     Dates: start: 2003
  2. FINASTERIDE. [Interacting]
     Active Substance: FINASTERIDE
     Indication: BENIGN PROSTATIC HYPERPLASIA
     Dosage: UNK, DAILY
     Dates: start: 2018
  3. TAMSULOSIN [Interacting]
     Active Substance: TAMSULOSIN
     Indication: BENIGN PROSTATIC HYPERPLASIA
     Dosage: 4 MG, 2X/DAY
     Dates: start: 2009

REACTIONS (3)
  - Drug interaction [Unknown]
  - Flushing [Recovered/Resolved]
  - Drug ineffective [Unknown]

NARRATIVE: CASE EVENT DATE: 20190307
